FAERS Safety Report 19802182 (Version 1)
Quarter: 2021Q3

REPORT INFORMATION
  Report Type: Spontaneous
  Country: SG (occurrence: SG)
  Receive Date: 20210908
  Receipt Date: 20210908
  Transmission Date: 20211014
  Serious: No
  Sender: FDA-Public Use
  Company Number: SG-LUPIN PHARMACEUTICALS INC.-2021-16480

PATIENT

DRUGS (2)
  1. PAROXETINE. [Suspect]
     Active Substance: PAROXETINE
     Indication: DEPRESSION
     Dosage: UNK (PAXIL)
     Route: 065
  2. SERTRALINE [Suspect]
     Active Substance: SERTRALINE HYDROCHLORIDE
     Indication: DEPRESSION
     Dosage: UNK (ZOLOFT)
     Route: 065

REACTIONS (6)
  - Abnormal behaviour [Unknown]
  - Libido decreased [Unknown]
  - Dry mouth [Unknown]
  - Diarrhoea [Unknown]
  - Dyspepsia [Unknown]
  - Somnolence [Unknown]
